FAERS Safety Report 20269188 (Version 3)
Quarter: 2022Q2

REPORT INFORMATION
  Report Type: Report from Study
  Country: US (occurrence: US)
  Receive Date: 20220101
  Receipt Date: 20220401
  Transmission Date: 20220721
  Serious: Yes (Other)
  Sender: FDA-Public Use
  Company Number: US-AUROBINDO-AUR-APL-2021-053454

PATIENT
  Sex: Male
  Weight: 38 kg

DRUGS (4)
  1. POLYMYXIN B [Suspect]
     Active Substance: POLYMYXIN B
     Indication: Cystic fibrosis
     Dosage: 75 MILLIGRAM, TWO TIMES A DAY, EVERY 12H FOR CYSTIC FIBROSIS
     Route: 042
  2. POLYMYXIN B [Suspect]
     Active Substance: POLYMYXIN B
     Dosage: 50 MILLIGRAM, TWO TIMES A DAY
     Route: 042
  3. POLYMYXIN B [Suspect]
     Active Substance: POLYMYXIN B
     Dosage: 100 MILLIGRAM, TWO TIMES A DAY
     Route: 042
  4. VANCOMYCIN [Suspect]
     Active Substance: VANCOMYCIN
     Indication: Cystic fibrosis
     Dosage: UNK
     Route: 065

REACTIONS (4)
  - Acute kidney injury [Unknown]
  - Neurotoxicity [Recovered/Resolved]
  - Ataxia [Recovered/Resolved]
  - Mental disorder [Recovered/Resolved]
